FAERS Safety Report 7913810-0 (Version None)
Quarter: 2011Q4

REPORT INFORMATION
  Report Type: 
  Country: None (occurrence: None)
  Receive Date: 20111115
  Receipt Date: 20111108
  Transmission Date: 20120403
  Serious: Yes (Death)
  Sender: FDA-Public Use
  Company Number: AU-JNJFOC-20110907109

PATIENT
  Age: 45 Year
  Sex: Male

DRUGS (2)
  1. RISPERDAL CONSTA [Suspect]
     Route: 065
  2. RISPERDAL CONSTA [Suspect]
     Indication: SCHIZOPHRENIA
     Dosage: 50 MG EVERY FORT NIGHT
     Route: 065
     Dates: start: 20090101

REACTIONS (6)
  - COMPLETED SUICIDE [None]
  - GENERALISED OEDEMA [None]
  - PHOTOSENSITIVITY REACTION [None]
  - BREAST ENLARGEMENT [None]
  - PAIN [None]
  - INCORRECT ROUTE OF DRUG ADMINISTRATION [None]
